FAERS Safety Report 6798023-0 (Version None)
Quarter: 2010Q2

REPORT INFORMATION
  Report Type: 
  Country: None (occurrence: None)
  Receive Date: 20100623
  Receipt Date: 20100604
  Transmission Date: 20101027
  Serious: Yes (Other)
  Sender: FDA-Public Use
  Company Number: 20108905

PATIENT
  Sex: Male

DRUGS (1)
  1. LIORESAL [Suspect]
     Indication: MUSCLE SPASTICITY
     Dosage: MCG, DAILY, INTRATHECAL -SEE B5

REACTIONS (6)
  - ATONIC URINARY BLADDER [None]
  - CONDITION AGGRAVATED [None]
  - CONVULSION [None]
  - DEVICE FAILURE [None]
  - MUSCLE SPASTICITY [None]
  - SOMNOLENCE [None]
